FAERS Safety Report 8063841-8 (Version None)
Quarter: 2012Q1

REPORT INFORMATION
  Report Type: 
  Country: None (occurrence: None)
  Receive Date: 20120123
  Receipt Date: 20120112
  Transmission Date: 20120608
  Serious: Yes (Hospitalization, Disabling, Other)
  Sender: FDA-Public Use
  Company Number: US-MERCK-1107USA03463

PATIENT
  Age: 49 Year
  Sex: Female
  Weight: 77 kg

DRUGS (25)
  1. FOSAMAX PLUS D [Suspect]
     Indication: OSTEOPENIA
     Route: 048
     Dates: start: 20050701, end: 20050801
  2. FOSAMAX PLUS D [Suspect]
     Route: 048
     Dates: start: 20070101, end: 20070801
  3. CYMBALTA [Concomitant]
     Indication: FIBROMYALGIA
     Route: 065
  4. FOSAMAX [Suspect]
     Route: 048
     Dates: start: 20060401, end: 20061201
  5. FOSAMAX PLUS D [Suspect]
     Route: 048
     Dates: start: 20060301
  6. TRAZODONE HYDROCHLORIDE [Concomitant]
     Indication: INSOMNIA
     Route: 065
  7. FIORINAL [Concomitant]
     Indication: MIGRAINE
     Route: 065
  8. FOSAMAX [Suspect]
     Indication: OSTEOPOROSIS
     Route: 048
     Dates: start: 20020301, end: 20050601
  9. FOSAMAX [Suspect]
     Route: 048
     Dates: start: 20050901, end: 20060201
  10. CORTICOSTEROIDS (UNSPECIFIED) [Concomitant]
     Route: 065
     Dates: start: 20020101, end: 20080201
  11. [THERAPY UNSPECIFIED] [Concomitant]
     Indication: RHEUMATOID ARTHRITIS
     Route: 065
     Dates: start: 20020301
  12. PROVIGIL [Concomitant]
     Indication: SOMNOLENCE
     Route: 065
  13. BENTYL [Concomitant]
     Indication: IRRITABLE BOWEL SYNDROME
     Route: 065
  14. FOSAMAX [Suspect]
     Route: 048
     Dates: start: 20070901
  15. HYDROCHLOROTHIAZIDE [Concomitant]
     Indication: OEDEMA
     Route: 065
  16. XANAX [Concomitant]
     Route: 065
  17. OXYCODONE [Concomitant]
     Indication: PAIN
     Route: 065
  18. HYDROCODONE [Concomitant]
     Indication: PAIN
     Route: 065
  19. FOSAMAX [Suspect]
     Indication: OSTEOPENIA
     Route: 048
     Dates: start: 20020301, end: 20050601
  20. FOSAMAX [Suspect]
     Route: 048
     Dates: start: 20060401, end: 20061201
  21. SINGULAIR [Concomitant]
     Indication: ASTHMA
     Route: 048
  22. FOSAMAX [Suspect]
     Route: 048
     Dates: start: 20050901, end: 20060201
  23. FOSAMAX [Suspect]
     Route: 048
     Dates: start: 20070901
  24. PROZAC [Concomitant]
     Indication: DEPRESSION
     Route: 065
  25. IMITREX [Concomitant]
     Indication: MIGRAINE
     Route: 065

REACTIONS (55)
  - FEMUR FRACTURE [None]
  - DEPRESSION [None]
  - THYROID DISORDER [None]
  - TENSION HEADACHE [None]
  - EPISTAXIS [None]
  - BURSITIS [None]
  - NAUSEA [None]
  - ANAEMIA [None]
  - AZOTAEMIA [None]
  - BACTERIAL INFECTION [None]
  - TOXIC ENCEPHALOPATHY [None]
  - SEROMA [None]
  - VOMITING [None]
  - RESTLESS LEGS SYNDROME [None]
  - GASTROOESOPHAGEAL REFLUX DISEASE [None]
  - INSOMNIA [None]
  - PSORIASIS [None]
  - PNEUMONIA [None]
  - AMNESIA [None]
  - ROTATOR CUFF SYNDROME [None]
  - HEPATIC CYST [None]
  - FRACTURE NONUNION [None]
  - ARTHRITIS [None]
  - PNEUMONIA ASPIRATION [None]
  - NERVOUS SYSTEM DISORDER [None]
  - CARPAL TUNNEL SYNDROME [None]
  - RESPIRATORY FAILURE [None]
  - FOOT FRACTURE [None]
  - NEUROPATHY PERIPHERAL [None]
  - MYASTHENIA GRAVIS [None]
  - HEADACHE [None]
  - SYNOVIAL CYST [None]
  - HYPERSENSITIVITY [None]
  - FALL [None]
  - PALPITATIONS [None]
  - EYE DISORDER [None]
  - CHRONIC SINUSITIS [None]
  - OSTEOPOROSIS [None]
  - NARCOLEPSY [None]
  - LOW TURNOVER OSTEOPATHY [None]
  - HYPOKALAEMIA [None]
  - MONOCLONAL GAMMOPATHY [None]
  - CONFUSIONAL STATE [None]
  - ATELECTASIS [None]
  - PAIN [None]
  - OESOPHAGEAL DISORDER [None]
  - NASAL SEPTUM DEVIATION [None]
  - DRY MOUTH [None]
  - HYPERTENSION [None]
  - FOLATE DEFICIENCY [None]
  - SLEEP APNOEA SYNDROME [None]
  - MULTIPLE FRACTURES [None]
  - ADVERSE DRUG REACTION [None]
  - NASOPHARYNGITIS [None]
  - NASAL CONGESTION [None]
